FAERS Safety Report 8873377 (Version 1)
Quarter: 2012Q4

REPORT INFORMATION
  Report Type: 
  Country: US (occurrence: US)
  Receive Date: 20121023
  Receipt Date: 20121023
  Transmission Date: 20130627
  Serious: No
  Sender: FDA-Public Use
  Company Number: US-ASTELLAS-2012US007527

PATIENT
  Sex: Male

DRUGS (1)
  1. LEXISCAN [Suspect]
     Indication: CARDIAC STRESS TEST
     Dosage: UNK
     Route: 042

REACTIONS (2)
  - Flushing [Recovered/Resolved]
  - Hyperhidrosis [Recovered/Resolved]
